FAERS Safety Report 6024130-6 (Version None)
Quarter: 2008Q4

REPORT INFORMATION
  Report Type: 
  Country: None (occurrence: None)
  Receive Date: 20081224
  Receipt Date: 20081211
  Transmission Date: 20090506
  Serious: Yes (Hospitalization)
  Sender: FDA-Public Use
  Company Number: KV200801100

PATIENT
  Age: 82 Year
  Sex: Male
  Weight: 71.7 kg

DRUGS (6)
  1. ISOSORBIDE MONONITRATE [Suspect]
     Indication: BLOOD PRESSURE INCREASED
     Dosage: 30 MG, QD, ORAL
     Route: 048
     Dates: start: 20060101
  2. ASPIRIN [Concomitant]
  3. LISINOPRIL [Concomitant]
  4. SIMVASTATIN [Concomitant]
  5. PENTOXIFYLLIN(PENTOXYIFYLLINE) [Concomitant]
  6. OMEPRAZOLE [Concomitant]

REACTIONS (6)
  - CEREBROVASCULAR ACCIDENT [None]
  - DIZZINESS [None]
  - FATIGUE [None]
  - HEART RATE DECREASED [None]
  - HYPOTENSION [None]
  - PRODUCT QUALITY ISSUE [None]
